FAERS Safety Report 24958788 (Version 1)
Quarter: 2025Q1

REPORT INFORMATION
  Report Type: Spontaneous
  Country: GB (occurrence: GB)
  Receive Date: 20250212
  Receipt Date: 20250212
  Transmission Date: 20250408
  Serious: Yes (Other)
  Sender: CIPLA
  Company Number: GB-MHRA-MED-202502051929291310-SQPMD

PATIENT

DRUGS (1)
  1. CETIRIZINE [Suspect]
     Active Substance: CETIRIZINE HYDROCHLORIDE
     Indication: Adverse drug reaction
     Dosage: 1 DOSAGE FORM, QD (1 ONCE A DAY TABLET)
     Route: 065

REACTIONS (1)
  - Arthralgia [Recovered/Resolved]
